FAERS Safety Report 5418412-6 (Version None)
Quarter: 2007Q3

REPORT INFORMATION
  Report Type: 
  Country: None (occurrence: None)
  Receive Date: 20070817
  Receipt Date: 20070813
  Transmission Date: 20080115
  Serious: Yes (Other)
  Sender: FDA-Public Use
  Company Number: US-AMGEN-US238645

PATIENT
  Sex: Female

DRUGS (8)
  1. ENBREL [Suspect]
     Indication: RHEUMATOID ARTHRITIS
     Route: 058
     Dates: end: 20050102
  2. METHOTREXATE [Suspect]
     Route: 048
     Dates: start: 19900501, end: 20050102
  3. PREDNISONE TAB [Concomitant]
     Dates: start: 19900501
  4. FOSAMAX [Concomitant]
     Route: 065
     Dates: start: 19970501
  5. ZYRTEC [Concomitant]
     Route: 065
  6. PRINIVIL [Concomitant]
     Route: 065
  7. NEXIUM [Concomitant]
     Route: 065
  8. ASPIRIN [Concomitant]
     Route: 065

REACTIONS (1)
  - APPENDICITIS PERFORATED [None]
